FAERS Safety Report 6922081-3 (Version None)
Quarter: 2010Q3

REPORT INFORMATION
  Report Type: 
  Country: None (occurrence: None)
  Receive Date: 20100812
  Receipt Date: 20100803
  Transmission Date: 20110219
  Serious: Yes (Hospitalization)
  Sender: FDA-Public Use
  Company Number: PT-ABBOTT-10P-130-0661304-00

PATIENT
  Sex: Male
  Weight: 60 kg

DRUGS (11)
  1. SUPRALIP [Suspect]
     Indication: DYSLIPIDAEMIA
     Route: 048
     Dates: start: 20100501, end: 20100607
  2. DIGOXIN [Concomitant]
     Indication: CARDIAC FAILURE
     Dosage: DAILY
     Route: 048
  3. WARFARIN SODIUM [Concomitant]
     Indication: PRODUCT USED FOR UNKNOWN INDICATION
     Dosage: DAILY
     Route: 048
  4. FINASTERIDE [Concomitant]
     Indication: BENIGN PROSTATIC HYPERPLASIA
     Route: 048
     Dates: start: 20100607
  5. ALLOPURINOL [Concomitant]
     Indication: HYPERURICAEMIA
     Route: 048
     Dates: start: 20100607
  6. HYDROCHLOROTHIAZIDE [Concomitant]
     Indication: CARDIAC FAILURE
     Route: 048
     Dates: start: 20100607
  7. GLIBENCLAMIDE [Concomitant]
     Indication: DIABETES MELLITUS
     Route: 048
     Dates: start: 20100607
  8. AMILORIDE HYDROCHLORIDE [Concomitant]
     Indication: CARDIAC FAILURE
     Route: 048
     Dates: start: 20100607
  9. BROMAZEPAM [Concomitant]
     Indication: INSOMNIA
     Route: 048
  10. METFORMIN HCL [Concomitant]
     Indication: DIABETES MELLITUS
     Dosage: DAILY
     Route: 048
     Dates: start: 20100607
  11. CARVEDILOL [Concomitant]
     Indication: CARDIAC FAILURE
     Route: 048

REACTIONS (10)
  - ALANINE AMINOTRANSFERASE INCREASED [None]
  - ASPARTATE AMINOTRANSFERASE INCREASED [None]
  - BILIRUBIN CONJUGATED INCREASED [None]
  - BLOOD ALKALINE PHOSPHATASE INCREASED [None]
  - BLOOD BILIRUBIN INCREASED [None]
  - CHOLURIA [None]
  - FATIGUE [None]
  - GAMMA-GLUTAMYLTRANSFERASE INCREASED [None]
  - HEPATITIS CHOLESTATIC [None]
  - JAUNDICE [None]
